FAERS Safety Report 11238721 (Version 2)
Quarter: 2015Q3

REPORT INFORMATION
  Report Type: Report from Study
  Country: US (occurrence: US)
  Receive Date: 20150706
  Receipt Date: 20150807
  Transmission Date: 20151125
  Serious: Yes (Death, Other)
  Sender: FDA-Public Use
  Company Number: PHEH2013US027071

PATIENT
  Age: 71 Year
  Sex: Female

DRUGS (1)
  1. TOBI [Suspect]
     Active Substance: TOBRAMYCIN
     Indication: BRONCHIECTASIS
     Dosage: 300 MG, BID
     Route: 055
     Dates: start: 20121211, end: 20130618

REACTIONS (7)
  - Death [Fatal]
  - Off label use [Unknown]
  - Infection [Unknown]
  - Feeling abnormal [Unknown]
  - Pulmonary fibrosis [Unknown]
  - Bronchiectasis [Unknown]
  - Cough [Unknown]

NARRATIVE: CASE EVENT DATE: 20131206
